FAERS Safety Report 19599042 (Version 1)
Quarter: 2021Q3

REPORT INFORMATION
  Report Type: Spontaneous
  Country: US (occurrence: US)
  Receive Date: 20210723
  Receipt Date: 20210723
  Transmission Date: 20211014
  Serious: No
  Sender: FDA-Public Use
  Company Number: None

PATIENT
  Age: 49 Year
  Sex: Female

DRUGS (1)
  1. BUPRENORPHINE TRANSDERMAL PATCH [Suspect]
     Active Substance: BUPRENORPHINE
     Dosage: ?          OTHER STRENGTH:20;QUANTITY:1 PATCH(ES);OTHER FREQUENCY:1 A WEEK;?

REACTIONS (1)
  - Infection [None]

NARRATIVE: CASE EVENT DATE: 20210719
